FAERS Safety Report 13347048 (Version 1)
Quarter: 2017Q1

REPORT INFORMATION
  Report Type: Spontaneous
  Country: US (occurrence: US)
  Receive Date: 20170317
  Receipt Date: 20170317
  Transmission Date: 20170428
  Serious: Yes (Hospitalization, Other)
  Sender: FDA-Public Use
  Company Number: US-SHIRE-US201705442

PATIENT
  Sex: Female

DRUGS (1)
  1. VPRIV [Suspect]
     Active Substance: VELAGLUCERASE ALFA
     Indication: LIPIDOSIS
     Dosage: 4800 IU, 1X/2WKS
     Route: 041
     Dates: start: 20160725

REACTIONS (3)
  - Gait disturbance [Unknown]
  - Dementia with Lewy bodies [Unknown]
  - Arthralgia [Unknown]
